FAERS Safety Report 6484642-8 (Version None)
Quarter: 2009Q4

REPORT INFORMATION
  Report Type: 
  Country: None (occurrence: None)
  Receive Date: 20091209
  Receipt Date: 20090618
  Transmission Date: 20100525
  Serious: No
  Sender: FDA-Public Use
  Company Number: US-AMGEN-KDL349482

PATIENT
  Sex: Female

DRUGS (28)
  1. ENBREL [Suspect]
     Indication: RHEUMATOID ARTHRITIS
     Route: 058
     Dates: start: 20001201
  2. LEFLUNOMIDE [Concomitant]
     Route: 048
  3. AZULFIDINE [Concomitant]
  4. DICLOFENAC [Concomitant]
  5. COLACE [Concomitant]
     Route: 048
  6. PERCOCET [Concomitant]
     Route: 048
  7. BENZONATATE [Concomitant]
     Route: 048
  8. VICODIN [Concomitant]
     Route: 048
  9. LIDODERM PATCH (ENDO PHARMACEUTICALS) [Concomitant]
     Route: 061
  10. VESICARE [Concomitant]
     Route: 048
  11. FLONASE [Concomitant]
  12. LASIX [Concomitant]
     Route: 048
  13. POTASSIUM CHLORIDE [Concomitant]
     Route: 048
  14. LAC-HYDRIN [Concomitant]
     Route: 061
  15. CALCITONIN [Concomitant]
  16. ATENOLOL [Concomitant]
     Route: 048
  17. VALIUM [Concomitant]
     Route: 048
  18. LACTULOSE [Concomitant]
     Route: 048
  19. DIOVAN [Concomitant]
     Route: 048
  20. FERGON [Concomitant]
     Route: 048
  21. LEXAPRO [Concomitant]
     Route: 048
  22. HYDROXYZINE [Concomitant]
     Route: 048
  23. ZYRTEC [Concomitant]
     Route: 048
  24. NEXIUM [Concomitant]
     Route: 048
  25. ESOMEPRAZOLE MAGNESIUM [Concomitant]
  26. TYLENOL (CAPLET) [Concomitant]
     Route: 048
  27. CALCIUM CITRATE [Concomitant]
     Route: 048
  28. GLUCOSAMINE W/CHONDROITIN SULFATES [Concomitant]
     Route: 048

REACTIONS (6)
  - LEUKOPENIA [None]
  - NAUSEA [None]
  - OSTEOARTHRITIS [None]
  - PROTEIN TOTAL ABNORMAL [None]
  - RHEUMATOID ARTHRITIS [None]
  - VOMITING [None]
